FAERS Safety Report 18307577 (Version 1)
Quarter: 2020Q3

REPORT INFORMATION
  Report Type: Spontaneous
  Country: CN (occurrence: CN)
  Receive Date: 20200924
  Receipt Date: 20200924
  Transmission Date: 20201103
  Serious: Yes (Hospitalization)
  Sender: FDA-Public Use
  Company Number: CN-PFIZER INC-2020367060

PATIENT
  Age: 46 Year
  Sex: Female
  Weight: 63.2 kg

DRUGS (5)
  1. FLUDARABINE PHOSPHATE. [Suspect]
     Active Substance: FLUDARABINE PHOSPHATE
     Indication: ACUTE MYELOID LEUKAEMIA
     Dosage: 50 MG, 1X/DAY
     Route: 041
     Dates: start: 20200516, end: 20200522
  2. BUSULFEX [Suspect]
     Active Substance: BUSULFAN
     Indication: ACUTE MYELOID LEUKAEMIA
     Dosage: 48 MG, 4X/DAY
     Route: 041
     Dates: start: 20200520, end: 20200522
  3. DACOGEN [Concomitant]
     Active Substance: DECITABINE
     Indication: ACUTE MYELOID LEUKAEMIA
     Dosage: 25 MG, 1X/DAY
     Route: 041
     Dates: start: 20200514, end: 20200518
  4. CYTOSAR [Suspect]
     Active Substance: CYTARABINE
     Indication: ACUTE MYELOID LEUKAEMIA
     Dosage: 3200 MG, 1X/DAY
     Route: 041
     Dates: start: 20200515, end: 20200518
  5. THYMOGLOBULINE [Concomitant]
     Active Substance: LAPINE T-LYMPHOCYTE IMMUNE GLOBULIN
     Indication: ACUTE MYELOID LEUKAEMIA
     Dosage: 150 MG, 1X/DAY
     Route: 041
     Dates: start: 20200522, end: 20200525

REACTIONS (1)
  - Pancreatic injury [Recovered/Resolved]

NARRATIVE: CASE EVENT DATE: 20200525
